FAERS Safety Report 17489077 (Version 2)
Quarter: 2020Q1

REPORT INFORMATION
  Report Type: Spontaneous
  Country: AR (occurrence: AR)
  Receive Date: 20200303
  Receipt Date: 20200306
  Transmission Date: 20200409
  Serious: Yes (Hospitalization, Other)
  Sender: FDA-Public Use
  Company Number: AR-ABBVIE-20K-007-3298136-00

PATIENT
  Age: 32 Year
  Sex: Female

DRUGS (4)
  1. RITONAVIR. [Suspect]
     Active Substance: RITONAVIR
     Indication: HIV INFECTION
     Route: 048
  2. DOLUTEGRAVIR [Suspect]
     Active Substance: DOLUTEGRAVIR
     Indication: HIV INFECTION
     Route: 065
  3. TENOFOVIR [Suspect]
     Active Substance: TENOFOVIR
     Indication: HIV INFECTION
     Route: 065
  4. DARUNAVIR [Suspect]
     Active Substance: DARUNAVIR
     Indication: HIV INFECTION
     Route: 065

REACTIONS (11)
  - Vomiting [Unknown]
  - Palpitations [Unknown]
  - Leukopenia [Unknown]
  - Pallor [Unknown]
  - Parvovirus B19 infection [Unknown]
  - Discomfort [Unknown]
  - Dyspnoea [Unknown]
  - Normochromic normocytic anaemia [Unknown]
  - Anaemia [Unknown]
  - Oral candidiasis [Unknown]
  - Aplastic anaemia [Unknown]
